FAERS Safety Report 8244126-3 (Version None)
Quarter: 2012Q1

REPORT INFORMATION
  Report Type: 
  Country: None (occurrence: None)
  Receive Date: 20120329
  Receipt Date: 20120322
  Transmission Date: 20120608
  Serious: Yes (Hospitalization, Other)
  Sender: FDA-Public Use
  Company Number: FR-PFIZER INC-2012074273

PATIENT
  Age: 93 Year
  Sex: Female

DRUGS (5)
  1. ASPIRIN [Concomitant]
     Indication: CEREBROVASCULAR ACCIDENT
     Dosage: UNK
  2. ATORVASTATIN [Suspect]
     Indication: DYSLIPIDAEMIA
     Dosage: UNK
     Route: 048
     Dates: start: 20111014, end: 20120124
  3. PERINDOPRIL [Concomitant]
     Indication: HYPERTENSION
     Dosage: UNK
  4. INDAPAMIDE [Concomitant]
     Indication: HYPERTENSION
     Dosage: UNK
  5. BISOPROLOL [Concomitant]
     Indication: HYPERTENSION
     Dosage: UNK

REACTIONS (4)
  - PNEUMONIA [None]
  - PLEURAL EFFUSION [None]
  - CHOLESTASIS [None]
  - CYTOLYTIC HEPATITIS [None]
